FAERS Safety Report 10010147 (Version 1)
Quarter: 2014Q1

REPORT INFORMATION
  Report Type: Spontaneous
  Country: US (occurrence: US)
  Receive Date: 20140312
  Receipt Date: 20140312
  Transmission Date: 20141002
  Serious: No
  Sender: FDA-Public Use
  Company Number: US-INCYTE CORPORATION-2013IN001495

PATIENT
  Age: 71 Year
  Sex: Male

DRUGS (6)
  1. JAKAFI [Suspect]
     Indication: MYELOFIBROSIS
     Dosage: 15 MG, BID
     Route: 048
     Dates: start: 201304
  2. CALCIUM [Concomitant]
  3. CIPRO [Concomitant]
  4. EXJADE [Concomitant]
  5. LASIX [Concomitant]
  6. SYNTHROID [Concomitant]

REACTIONS (2)
  - Sinusitis [Recovered/Resolved]
  - Headache [Unknown]
